FAERS Safety Report 4847563-X (Version None)
Quarter: 2005Q4

REPORT INFORMATION
  Report Type: 
  Country: None (occurrence: None)
  Receive Date: 20051207
  Receipt Date: 20031209
  Transmission Date: 20060501
  Serious: Yes (Life-Threatening, Hospitalization, Disabling, Other)
  Sender: FDA-Public Use
  Company Number: CL-AVENTIS-200322518GDDC

PATIENT
  Age: 58 Year
  Sex: Female

DRUGS (6)
  1. ARAVA [Suspect]
     Indication: RHEUMATOID ARTHRITIS
     Route: 048
     Dates: start: 20031103, end: 20031105
  2. ARAVA [Suspect]
     Route: 048
     Dates: start: 20031106, end: 20031114
  3. ARAVA [Suspect]
     Indication: MIXED CONNECTIVE TISSUE DISEASE
     Route: 048
     Dates: start: 20031103, end: 20031105
  4. ARAVA [Suspect]
     Route: 048
     Dates: start: 20031106, end: 20031114
  5. PREDNISONE [Concomitant]
     Indication: RHEUMATOID ARTHRITIS
     Route: 048
     Dates: start: 20030930
  6. METHOTREXATE [Concomitant]
     Indication: RHEUMATOID ARTHRITIS
     Route: 048
     Dates: start: 20030612, end: 20030930

REACTIONS (12)
  - BLISTER [None]
  - EYE DISORDER [None]
  - GENERALISED OEDEMA [None]
  - KERATITIS [None]
  - LUNG INFECTION PSEUDOMONAL [None]
  - MIXED CONNECTIVE TISSUE DISEASE [None]
  - NECROSIS [None]
  - ORAL MUCOSAL DISORDER [None]
  - PYREXIA [None]
  - RASH MACULO-PAPULAR [None]
  - SCAR [None]
  - TOXIC EPIDERMAL NECROLYSIS [None]
